FAERS Safety Report 22350815 (Version 1)
Quarter: 2023Q2

REPORT INFORMATION
  Report Type: Spontaneous
  Country: US (occurrence: None)
  Receive Date: 20230521
  Receipt Date: 20230521
  Transmission Date: 20230721
  Serious: No
  Sender: FDA-Public Use
  Company Number: None

PATIENT
  Age: 51 Year
  Sex: Male
  Weight: 65.25 kg

DRUGS (4)
  1. ZORYVE [Suspect]
     Active Substance: ROFLUMILAST
     Indication: Psoriasis
     Route: 061
     Dates: start: 20230510, end: 20230518
  2. LAMOTRIGINE [Concomitant]
     Active Substance: LAMOTRIGINE
  3. LITHIUM [Concomitant]
     Active Substance: LITHIUM
  4. FISH OIL [Concomitant]
     Active Substance: FISH OIL

REACTIONS (7)
  - Headache [None]
  - Noninfective encephalitis [None]
  - Sensory disturbance [None]
  - Depersonalisation/derealisation disorder [None]
  - Heart rate increased [None]
  - Brain fog [None]
  - Arrhythmia [None]

NARRATIVE: CASE EVENT DATE: 20230518
